FAERS Safety Report 19147785 (Version 1)
Quarter: 2021Q2

REPORT INFORMATION
  Report Type: Spontaneous
  Country: BR (occurrence: BR)
  Receive Date: 20210416
  Receipt Date: 20210416
  Transmission Date: 20210717
  Serious: Yes (Other)
  Sender: FDA-Public Use
  Company Number: BR-PRAGMA-2021-BR-000064

PATIENT
  Age: 18 Year
  Sex: Female

DRUGS (1)
  1. CEPHALEXIN (NON?SPECIFIC) [Suspect]
     Active Substance: CEPHALEXIN
     Indication: PRODUCT USED FOR UNKNOWN INDICATION

REACTIONS (1)
  - Pemphigoid [Unknown]
